FAERS Safety Report 21666996 (Version 1)
Quarter: 2022Q4

REPORT INFORMATION
  Report Type: Spontaneous
  Country: US (occurrence: None)
  Receive Date: 20221130
  Receipt Date: 20221130
  Transmission Date: 20230113
  Serious: Yes (Death)
  Sender: FDA-Public Use
  Company Number: None

PATIENT
  Sex: Female

DRUGS (15)
  1. PROLIA [Suspect]
     Active Substance: DENOSUMAB
     Indication: Senile osteoporosis
     Dosage: OTHER FREQUENCY : EVERY 6 MONTHS;?
     Route: 058
     Dates: start: 20170517
  2. AMOXICILLIN CAP [Concomitant]
  3. BD PEN NEEDL MIS [Concomitant]
  4. BENICAR HCT TAB [Concomitant]
  5. DAILY MULTI TAB MULTIVITAMIN [Concomitant]
  6. FOLIC ACID TAB [Concomitant]
  7. LANSOPRAZOLE CAP DR [Concomitant]
  8. LORAZEPAM TAB [Concomitant]
  9. METHOTREXATE [Concomitant]
     Active Substance: METHOTREXATE
  10. METOPROL TAR TAB [Concomitant]
  11. ORENCIA [Concomitant]
     Active Substance: ABATACEPT
  12. PRAVASTATIN [Concomitant]
     Active Substance: PRAVASTATIN
  13. SKELAXIN TAB [Concomitant]
  14. ST JOSEPH AS CHW [Concomitant]
  15. ZYRTEC ALLGY TAB [Concomitant]

REACTIONS (1)
  - Death [None]
